FAERS Safety Report 4268855-1 (Version None)
Quarter: 2004Q1

REPORT INFORMATION
  Report Type: 
  Country: None (occurrence: None)
  Receive Date: 20040109
  Receipt Date: 20031223
  Transmission Date: 20041129
  Serious: Yes (Hospitalization)
  Sender: FDA-Public Use
  Company Number: USA030948081

PATIENT
  Age: 68 Year
  Sex: Female

DRUGS (1)
  1. FORTEO [Suspect]
     Indication: OSTEOPOROSIS
     Dosage: 20 UG/DAY
     Dates: start: 20030401

REACTIONS (7)
  - ANGINA PECTORIS [None]
  - BACK PAIN [None]
  - CARDIAC FAILURE CONGESTIVE [None]
  - COMPRESSION FRACTURE [None]
  - CONDITION AGGRAVATED [None]
  - DIARRHOEA [None]
  - INTERVERTEBRAL DISC DEGENERATION [None]
